FAERS Safety Report 25507670 (Version 1)
Quarter: 2025Q3

REPORT INFORMATION
  Report Type: Report from Study
  Country: US (occurrence: US)
  Receive Date: 20250703
  Receipt Date: 20250703
  Transmission Date: 20251021
  Serious: Yes (Other)
  Sender: EMD SERONO INC
  Company Number: US-Merck Healthcare KGaA-2025023987

PATIENT
  Age: 40 Year
  Sex: Male

DRUGS (1)
  1. MAVENCLAD [Suspect]
     Active Substance: CLADRIBINE
     Indication: Multiple sclerosis

REACTIONS (4)
  - Iron deficiency anaemia [Recovered/Resolved]
  - Gastrointestinal haemorrhage [Unknown]
  - Monocyte count increased [Unknown]
  - Nausea [Unknown]

NARRATIVE: CASE EVENT DATE: 20150601
